FAERS Safety Report 7933936-5 (Version None)
Quarter: 2011Q4

REPORT INFORMATION
  Report Type: 
  Country: None (occurrence: None)
  Receive Date: 20111122
  Receipt Date: 20111117
  Transmission Date: 20120403
  Serious: Yes (Other)
  Sender: FDA-Public Use
  Company Number: US-JNJFOC-20111103810

PATIENT
  Sex: Male

DRUGS (5)
  1. LEXAPRO [Concomitant]
     Indication: ANXIETY
     Dosage: FOR 15 YEARS
     Route: 065
     Dates: start: 19960101
  2. CIALIS [Concomitant]
     Indication: PRODUCT USED FOR UNKNOWN INDICATION
     Dosage: OCCASIONALLY
     Route: 065
  3. ROGAINE EXTRA STRENGTH (FOR MEN) [Suspect]
     Route: 061
  4. ROGAINE EXTRA STRENGTH (FOR MEN) [Suspect]
     Indication: PRODUCT USED FOR UNKNOWN INDICATION
     Dosage: HALF CAPFUL, ONE TO TWO TIMES A DAY
     Route: 061
     Dates: start: 20110819, end: 20111101
  5. KLONOPIN [Concomitant]
     Indication: ANXIETY
     Dosage: FOR 15 YEARS
     Route: 065
     Dates: start: 19960101

REACTIONS (3)
  - TINNITUS [None]
  - DIZZINESS [None]
  - DYSPNOEA [None]
